FAERS Safety Report 6338979-3 (Version None)
Quarter: 2009Q3

REPORT INFORMATION
  Report Type: 
  Country: None (occurrence: None)
  Receive Date: 20090903
  Receipt Date: 20090831
  Transmission Date: 20100115
  Serious: Yes (Death)
  Sender: FDA-Public Use
  Company Number: JP-BAYER-200912828BYL

PATIENT
  Age: 73 Year
  Sex: Male
  Weight: 68 kg

DRUGS (8)
  1. CIPROXAN-I.V. [Suspect]
     Indication: PNEUMONIA
     Dosage: TOTAL DAILY DOSE: 600 MG  UNIT DOSE: 300 MG
     Route: 041
     Dates: start: 20090721, end: 20090724
  2. KLARICID [Concomitant]
     Indication: PNEUMONIA
     Route: 048
     Dates: start: 20090710, end: 20090716
  3. OMEGACIN [Concomitant]
     Indication: PNEUMONIA
     Dosage: TOTAL DAILY DOSE: 0.6 G
     Route: 042
     Dates: start: 20090717, end: 20090720
  4. PRIDOL [Concomitant]
     Dosage: TOTAL DAILY DOSE: 1 G
     Route: 042
     Dates: start: 20090721, end: 20090722
  5. SERENACE [Concomitant]
     Dosage: TOTAL DAILY DOSE: 5 MG
     Route: 042
     Dates: start: 20090723, end: 20090723
  6. DORMICUM [Concomitant]
     Dosage: TOTAL DAILY DOSE: 20 MG
     Route: 042
     Dates: start: 20090723, end: 20090724
  7. BISOLVON [Concomitant]
     Dosage: TOTAL DAILY DOSE: 8 MG
     Route: 042
     Dates: start: 20090721, end: 20090724
  8. OXYCONTIN [Concomitant]
     Dosage: TOTAL DAILY DOSE: 120 MG
     Route: 048
     Dates: start: 20090721, end: 20090723

REACTIONS (1)
  - ADENOID CYSTIC CARCINOMA [None]
